FAERS Safety Report 13748933 (Version 1)
Quarter: 2017Q3

REPORT INFORMATION
  Report Type: Spontaneous
  Country: US (occurrence: US)
  Receive Date: 20170713
  Receipt Date: 20170713
  Transmission Date: 20171127
  Serious: No
  Sender: FDA-Public Use
  Company Number: PHEH2017US021201

PATIENT
  Age: 42 Year
  Sex: Female

DRUGS (1)
  1. TYKERB [Suspect]
     Active Substance: LAPATINIB DITOSYLATE
     Indication: BREAST CANCER FEMALE
     Dosage: 1250 MG (5 TABS), QD
     Route: 048
     Dates: start: 20170608

REACTIONS (2)
  - Rash pruritic [Unknown]
  - Rash generalised [Unknown]

NARRATIVE: CASE EVENT DATE: 20170701
